FAERS Safety Report 7422017-5 (Version None)
Quarter: 2011Q2

REPORT INFORMATION
  Report Type: 
  Country: None (occurrence: None)
  Receive Date: 20110418
  Receipt Date: 20110415
  Transmission Date: 20111010
  Serious: No
  Sender: FDA-Public Use
  Company Number: US-PFIZER INC-2011068888

PATIENT
  Sex: Male
  Weight: 73.5 kg

DRUGS (5)
  1. CHANTIX [Suspect]
     Dosage: 0.5 MG, 2X/DAY
     Route: 048
     Dates: start: 20110301, end: 20110301
  2. PROCATEROL HYDROCHLORIDE [Concomitant]
     Dosage: UNK
  3. CHANTIX [Suspect]
     Dosage: 1 MG, 2X/DAY
     Dates: start: 20110301, end: 20110329
  4. CHANTIX [Suspect]
     Dosage: 0.5 MG, 1X/DAY
     Route: 048
     Dates: start: 20110318
  5. MOMETASONE FUROATE [Concomitant]
     Dosage: UNK

REACTIONS (6)
  - SLEEP DISORDER [None]
  - RASH [None]
  - MIGRAINE [None]
  - FURUNCLE [None]
  - OROPHARYNGEAL PAIN [None]
  - HEADACHE [None]
